FAERS Safety Report 6101203-0 (Version None)
Quarter: 2009Q1

REPORT INFORMATION
  Report Type: 
  Country: None (occurrence: None)
  Receive Date: 20090304
  Receipt Date: 20090223
  Transmission Date: 20090719
  Serious: Yes (Other)
  Sender: FDA-Public Use
  Company Number: US-ALLERGAN-0901739US

PATIENT
  Sex: Female

DRUGS (2)
  1. CELLUVISC [Suspect]
     Indication: DRY EYE
     Dosage: UNK, UNKNOWN
     Route: 047
     Dates: start: 20090101
  2. CELLUVISC [Suspect]

REACTIONS (6)
  - CORNEAL ABRASION [None]
  - EYE IRRITATION [None]
  - HYPERSENSITIVITY [None]
  - MYDRIASIS [None]
  - OCULAR HYPERAEMIA [None]
  - PHOTOPHOBIA [None]
